FAERS Safety Report 17424294 (Version 2)
Quarter: 2020Q1

REPORT INFORMATION
  Report Type: Spontaneous
  Country: JP (occurrence: JP)
  Receive Date: 20200217
  Receipt Date: 20200219
  Transmission Date: 20200409
  Serious: No
  Sender: FDA-Public Use
  Company Number: JP-ROCHE-2547228

PATIENT
  Age: 40 Year
  Sex: Male

DRUGS (5)
  1. CERITINIB [Concomitant]
     Active Substance: CERITINIB
  2. CARBOPLATIN. [Concomitant]
     Active Substance: CARBOPLATIN
  3. ALECENSA [Suspect]
     Active Substance: ALECTINIB HYDROCHLORIDE
     Indication: LUNG ADENOCARCINOMA
     Dosage: DOSAGE IS UNCERTAIN.
     Route: 048
  4. PEMETREXED. [Concomitant]
     Active Substance: PEMETREXED
  5. BEVACIZUMAB. [Concomitant]
     Active Substance: BEVACIZUMAB
     Route: 065

REACTIONS (1)
  - Hepatic function abnormal [Unknown]
